FAERS Safety Report 9637018 (Version 1)
Quarter: 2013Q4

REPORT INFORMATION
  Report Type: Spontaneous
  Country: US (occurrence: None)
  Receive Date: 20131017
  Receipt Date: 20131017
  Transmission Date: 20140711
  Serious: Yes (Other)
  Sender: FDA-Public Use
  Company Number: US201308004240

PATIENT
  Age: 70 Year
  Sex: Female

DRUGS (1)
  1. CECLOR [Suspect]

REACTIONS (1)
  - Anaphylactic reaction [None]
